FAERS Safety Report 8848284 (Version 1)
Quarter: 2012Q4

REPORT INFORMATION
  Report Type: 
  Country: JP (occurrence: JP)
  Receive Date: 20121018
  Receipt Date: 20121018
  Transmission Date: 20130627
  Serious: Yes (Death)
  Sender: FDA-Public Use
  Company Number: JP-OTSUKA-JP-2012-16565

PATIENT
  Age: 80 Year
  Sex: Female

DRUGS (2)
  1. PLETAAL [Suspect]
     Route: 048
  2. ANTIHYPERTENSIVES [Concomitant]
     Route: 065

REACTIONS (1)
  - Myocardial infarction [Fatal]
